FAERS Safety Report 11761956 (Version 1)
Quarter: 2015Q4

REPORT INFORMATION
  Report Type: Spontaneous
  Country: US (occurrence: US)
  Receive Date: 20151120
  Receipt Date: 20151120
  Transmission Date: 20160304
  Serious: No
  Sender: FDA-Public Use
  Company Number: US-ELI_LILLY_AND_COMPANY-US201301004675

PATIENT
  Age: 91 Year
  Sex: Female

DRUGS (3)
  1. FORTEO [Suspect]
     Active Substance: TERIPARATIDE
     Dosage: 20 UG, QD
     Route: 065
     Dates: end: 201301
  2. FORTEO [Suspect]
     Active Substance: TERIPARATIDE
     Indication: OSTEOPOROSIS
     Dosage: 20 UG, QD
     Route: 065
     Dates: start: 20121226, end: 20121231
  3. CALCIUM [Concomitant]
     Active Substance: CALCIUM
     Dosage: 1250 MG, QD

REACTIONS (11)
  - Tremor [Recovered/Resolved]
  - Feeding disorder [Recovering/Resolving]
  - Asthenia [Not Recovered/Not Resolved]
  - Tremor [Recovering/Resolving]
  - Fatigue [Recovering/Resolving]
  - Intentional product misuse [Recovered/Resolved]
  - Sluggishness [Recovering/Resolving]
  - Intentional product misuse [Not Recovered/Not Resolved]
  - Hypersomnia [Recovering/Resolving]
  - Somnolence [Recovering/Resolving]
  - Vomiting [Recovering/Resolving]

NARRATIVE: CASE EVENT DATE: 20121230
